FAERS Safety Report 9356223 (Version 2)
Quarter: 2013Q3

REPORT INFORMATION
  Report Type: Spontaneous
  Country: US (occurrence: US)
  Receive Date: 20130619
  Receipt Date: 20130716
  Transmission Date: 20140515
  Serious: No
  Sender: FDA-Public Use
  Company Number: US-009507513-1305USA017335

PATIENT
  Sex: Female

DRUGS (1)
  1. DR. SCHOLL^S FREEZE AWAY COMMON + PLANTAR WART REMOVER [Suspect]
     Indication: SKIN PAPILLOMA
     Dosage: UNK, ONCE
     Route: 061
     Dates: start: 201212

REACTIONS (5)
  - Scar [Unknown]
  - Depression [Unknown]
  - Application site discolouration [Unknown]
  - Blister [Unknown]
  - Anxiety [Unknown]
